FAERS Safety Report 5629451-4 (Version None)
Quarter: 2008Q1

REPORT INFORMATION
  Report Type: 
  Country: None (occurrence: None)
  Receive Date: 20080218
  Receipt Date: 20080205
  Transmission Date: 20080703
  Serious: Yes (Death)
  Sender: FDA-Public Use
  Company Number: KR-NOVOPROD-272186

PATIENT
  Sex: Female
  Weight: 60 kg

DRUGS (2)
  1. LEVEMIR [Suspect]
     Indication: TYPE 2 DIABETES MELLITUS
     Dosage: 12 IU, QD
     Dates: start: 20070817, end: 20071025
  2. LEVEMIR [Suspect]
     Dosage: 24 IU, QD
     Dates: start: 20071025

REACTIONS (1)
  - DEATH [None]
